FAERS Safety Report 23292150 (Version 1)
Quarter: 2023Q4

REPORT INFORMATION
  Report Type: Spontaneous
  Country: CA (occurrence: CA)
  Receive Date: 20231213
  Receipt Date: 20231213
  Transmission Date: 20240110
  Serious: Yes (Other)
  Sender: FDA-Public Use
  Company Number: CA-AMGEN-CANSP2023221526

PATIENT

DRUGS (3)
  1. RITUXIMAB [Suspect]
     Active Substance: RITUXIMAB
     Indication: Rheumatoid arthritis
     Dosage: UNK
     Route: 065
  2. ELASOMERAN [Concomitant]
     Active Substance: ELASOMERAN
     Dosage: UNK
     Route: 065
  3. MODERNA COVID-19 VACCINE [Concomitant]
     Active Substance: ELASOMERAN
     Dosage: UNK
     Route: 065

REACTIONS (11)
  - Ophthalmic herpes zoster [Unknown]
  - Rheumatoid arthritis [Unknown]
  - Adverse event [Unknown]
  - Musculoskeletal disorder [Unknown]
  - Antibody test abnormal [Unknown]
  - Neutralising antibodies [Unknown]
  - COVID-19 [Unknown]
  - Joint swelling [Unknown]
  - Injection site pain [Unknown]
  - Arthralgia [Unknown]
  - Fatigue [Unknown]
